FAERS Safety Report 17882293 (Version 1)
Quarter: 2020Q2

REPORT INFORMATION
  Report Type: Spontaneous
  Country: US (occurrence: US)
  Receive Date: 20200610
  Receipt Date: 20200610
  Transmission Date: 20200714
  Serious: Yes (Hospitalization)
  Sender: FDA-Public Use
  Company Number: US-SLATE RUN PHARMACEUTICALS-20US000178

PATIENT

DRUGS (7)
  1. AZITHROMYCIN USP [Suspect]
     Active Substance: AZITHROMYCIN
     Dosage: UNK
     Route: 064
  2. ATOVAQUONE. [Suspect]
     Active Substance: ATOVAQUONE
     Indication: MATERNAL EXPOSURE TIMING UNSPECIFIED
     Dosage: 20 MILLIGRAM PER KILOGRAM, Q 12 HR
     Route: 065
  3. ATOVAQUONE. [Suspect]
     Active Substance: ATOVAQUONE
     Indication: BABESIOSIS
     Dosage: UNK
     Route: 064
  4. AZITHROMYCIN USP [Suspect]
     Active Substance: AZITHROMYCIN
     Indication: MATERNAL EXPOSURE TIMING UNSPECIFIED
     Dosage: 5 MILLIGRAM PER KILOGRAM, QD
     Route: 065
  5. CLINDAMYCIN. [Suspect]
     Active Substance: CLINDAMYCIN
     Indication: MATERNAL EXPOSURE TIMING UNSPECIFIED
     Route: 064
  6. AZITHROMYCIN USP [Suspect]
     Active Substance: AZITHROMYCIN
     Indication: BABESIOSIS
     Dosage: 10 MILLIGRAM PER KILOGRAM, SINGLE
     Route: 065
  7. QUININE [Suspect]
     Active Substance: QUININE
     Indication: MATERNAL EXPOSURE TIMING UNSPECIFIED
     Route: 064

REACTIONS (3)
  - Extramedullary haemopoiesis [Unknown]
  - Off label use [Recovered/Resolved]
  - Acute myeloid leukaemia [Unknown]
